FAERS Safety Report 16819840 (Version 2)
Quarter: 2019Q3

REPORT INFORMATION
  Report Type: Spontaneous
  Country: JP (occurrence: JP)
  Receive Date: 20190917
  Receipt Date: 20190928
  Transmission Date: 20191005
  Serious: Yes (Other)
  Sender: FDA-Public Use
  Company Number: PHJP2019JP011935

PATIENT

DRUGS (4)
  1. CICLOSPORIN [Suspect]
     Active Substance: CYCLOSPORINE
     Indication: APLASTIC ANAEMIA
     Dosage: 300 MG, QD
     Route: 065
     Dates: start: 201704, end: 201811
  2. ELTROMBOPAG [Suspect]
     Active Substance: ELTROMBOPAG
     Indication: APLASTIC ANAEMIA
     Dosage: UNK MG, UNK
     Route: 065
     Dates: start: 201805
  3. CICLOSPORIN [Suspect]
     Active Substance: CYCLOSPORINE
     Indication: PAROXYSMAL NOCTURNAL HAEMOGLOBINURIA
     Dosage: 200 MG, QD
     Route: 065
     Dates: start: 201811
  4. ELTROMBOPAG [Suspect]
     Active Substance: ELTROMBOPAG
     Indication: PAROXYSMAL NOCTURNAL HAEMOGLOBINURIA
     Dosage: 100 MG, QD
     Route: 065
     Dates: start: 201812

REACTIONS (2)
  - Neutrophil count decreased [Recovering/Resolving]
  - Haemoglobin decreased [Recovered/Resolved]

NARRATIVE: CASE EVENT DATE: 201706
